FAERS Safety Report 20583503 (Version 2)
Quarter: 2022Q1

REPORT INFORMATION
  Report Type: Spontaneous
  Country: MA (occurrence: MA)
  Receive Date: 20220311
  Receipt Date: 20220322
  Transmission Date: 20220423
  Serious: Yes (Other)
  Sender: FDA-Public Use
  Company Number: MA-PFIZER INC-202200336897

PATIENT
  Age: 45 Year
  Sex: Female

DRUGS (1)
  1. METHYLPREDNISOLONE [Suspect]
     Active Substance: METHYLPREDNISOLONE
     Indication: Behcet^s syndrome
     Dosage: 3 BOLI OF S1 G RELAYED BY ORAL CORTICOSTEROIDS AT A DOSE OF 1 MG/KG/DAY WITH A GRADUAL DECREASE
     Route: 048

REACTIONS (1)
  - Chorioretinitis [Recovered/Resolved]
